FAERS Safety Report 5228928-3 (Version None)
Quarter: 2007Q1

REPORT INFORMATION
  Report Type: 
  Country: None (occurrence: None)
  Receive Date: 20070205
  Receipt Date: 20070129
  Transmission Date: 20070707
  Serious: Yes (Other)
  Sender: FDA-Public Use
  Company Number: 2001UW08758

PATIENT
  Age: 50 Year
  Sex: Male
  Weight: 63.6 kg

DRUGS (3)
  1. SEROQUEL [Suspect]
     Indication: THINKING ABNORMAL
     Route: 048
     Dates: start: 20000101
  2. SEROQUEL [Suspect]
     Indication: INSOMNIA
     Route: 048
     Dates: start: 20000101
  3. METHADONE HCL [Concomitant]

REACTIONS (5)
  - CATARACT [None]
  - DYSKINESIA [None]
  - LUNG DISORDER [None]
  - SLEEP APNOEA SYNDROME [None]
  - VISION BLURRED [None]
